FAERS Safety Report 25078576 (Version 1)
Quarter: 2025Q1

REPORT INFORMATION
  Report Type: Spontaneous
  Country: US (occurrence: None)
  Receive Date: 20250314
  Receipt Date: 20250314
  Transmission Date: 20250409
  Serious: Yes (Hospitalization)
  Sender: FDA-CTU
  Company Number: None

PATIENT
  Sex: Female

DRUGS (1)
  1. FULPHILA [Suspect]
     Active Substance: PEGFILGRASTIM-JMDB
     Indication: Primary mediastinal large B-cell lymphoma refractory
     Route: 058

REACTIONS (5)
  - Neutropenia [None]
  - Insurance issue [None]
  - Pyrexia [None]
  - Viral infection [None]
  - Sepsis [None]
